FAERS Safety Report 4999213-X (Version None)
Quarter: 2006Q2

REPORT INFORMATION
  Report Type: 
  Country: None (occurrence: None)
  Receive Date: 20060511
  Receipt Date: 20060309
  Transmission Date: 20061013
  Serious: Yes (Hospitalization, Other)
  Sender: FDA-Public Use
  Company Number: PHBS2006BR03822

PATIENT
  Age: 37 Year
  Sex: Female
  Weight: 65 kg

DRUGS (6)
  1. PURAN T4 [Concomitant]
     Indication: HYPOTHYROIDISM
     Dosage: 1 TABLET/DAY
     Dates: start: 20030101
  2. PROPRANOLOL [Concomitant]
     Indication: ARRHYTHMIA
     Dosage: 40 MG, BID
     Route: 048
     Dates: start: 20051201, end: 20060221
  3. MORPHINE [Concomitant]
  4. TILATIL [Concomitant]
  5. BUSCOPAN [Concomitant]
  6. DIOVAN HCT [Suspect]
     Indication: HYPERTENSION
     Dosage: VALS 160 / HCT 12.5 MG/DAY
     Route: 048

REACTIONS (16)
  - AGITATION [None]
  - BLOOD PRESSURE INCREASED [None]
  - BLOOD URINE [None]
  - COLITIS [None]
  - DIARRHOEA [None]
  - DIZZINESS [None]
  - FATIGUE [None]
  - HEADACHE [None]
  - KIDNEY INFECTION [None]
  - MOUTH INJURY [None]
  - NEPHROLITHIASIS [None]
  - PYREXIA [None]
  - TACHYCARDIA [None]
  - THIRST [None]
  - URINE OUTPUT DECREASED [None]
  - VIRAL INFECTION [None]
